FAERS Safety Report 25332100 (Version 1)
Quarter: 2025Q2

REPORT INFORMATION
  Report Type: Spontaneous
  Country: US (occurrence: US)
  Receive Date: 20250519
  Receipt Date: 20250519
  Transmission Date: 20250716
  Serious: Yes (Other)
  Sender: NEUROCRINE BIOSCIENCES
  Company Number: US-NEUROCRINE BIOSCIENCES INC.-2025NBI05996

PATIENT
  Age: 57 Year
  Sex: Male

DRUGS (5)
  1. INGREZZA [Suspect]
     Active Substance: VALBENAZINE DITOSYLATE
     Indication: Tardive dyskinesia
     Route: 048
     Dates: start: 20250501, end: 20250502
  2. INGREZZA [Suspect]
     Active Substance: VALBENAZINE DITOSYLATE
     Route: 048
     Dates: start: 202504
  3. INGREZZA [Suspect]
     Active Substance: VALBENAZINE DITOSYLATE
     Route: 048
     Dates: start: 20250331, end: 202504
  4. PROPRANOLOL [Concomitant]
     Active Substance: PROPRANOLOL HYDROCHLORIDE
  5. VRAYLAR [Concomitant]
     Active Substance: CARIPRAZINE

REACTIONS (1)
  - Anaphylactic reaction [Recovered/Resolved]

NARRATIVE: CASE EVENT DATE: 20250502
